FAERS Safety Report 6822096-X (Version None)
Quarter: 2010Q3

REPORT INFORMATION
  Report Type: 
  Country: None (occurrence: None)
  Receive Date: 20100706
  Receipt Date: 20100622
  Transmission Date: 20110219
  Serious: Yes (Hospitalization)
  Sender: FDA-Public Use
  Company Number: 2010MA000188

PATIENT
  Age: 34 Year
  Sex: Female
  Weight: 78.9 kg

DRUGS (7)
  1. DICLOFENAC SODIUM [Suspect]
     Indication: MENSTRUAL DISCOMFORT
     Dosage: 50 MG;TID;PO
     Route: 048
     Dates: start: 20080620
  2. VENTOLIN [Concomitant]
  3. SERETIDE [Concomitant]
  4. VITAMINS [Concomitant]
  5. ACETAMINOPHEN [Concomitant]
  6. CEPHALEXIN [Concomitant]
  7. TRAMADOL [Concomitant]

REACTIONS (19)
  - ARTHRALGIA [None]
  - BEDRIDDEN [None]
  - DEHYDRATION [None]
  - DEPRESSION [None]
  - DIARRHOEA [None]
  - FOREIGN BODY SENSATION IN EYES [None]
  - IMPAIRED WORK ABILITY [None]
  - JOINT SWELLING [None]
  - KIDNEY ENLARGEMENT [None]
  - MALAISE [None]
  - MUSCLE ATROPHY [None]
  - OCULAR HYPERAEMIA [None]
  - RENAL FAILURE ACUTE [None]
  - SEPSIS [None]
  - SKIN HYPERPIGMENTATION [None]
  - URINARY TRACT INFECTION [None]
  - VASOCONSTRICTION [None]
  - VISUAL IMPAIRMENT [None]
  - WEIGHT DECREASED [None]
